FAERS Safety Report 17890411 (Version 1)
Quarter: 2020Q2

REPORT INFORMATION
  Report Type: Report from Study
  Country: US (occurrence: US)
  Receive Date: 20200612
  Receipt Date: 20200612
  Transmission Date: 20200714
  Serious: Yes (Death, Other)
  Sender: FDA-Public Use
  Company Number: US-PFIZER INC-2020228149

PATIENT
  Age: 74 Year

DRUGS (9)
  1. CYCLOPHOSPHAMIDE. [Suspect]
     Active Substance: CYCLOPHOSPHAMIDE
     Indication: BURKITT^S LYMPHOMA
     Dosage: 750 MG/M2, CYCLIC (DAY 5)
     Route: 042
  2. ALLOPURINOL. [Concomitant]
     Active Substance: ALLOPURINOL
     Indication: PROPHYLAXIS
  3. DOXORUBICIN HCL [Suspect]
     Active Substance: DOXORUBICIN HYDROCHLORIDE
     Indication: BURKITT^S LYMPHOMA
     Dosage: 10 MG/M2, CYCLIC, (DAYS 1-4 CONTINUOUS INTRAVENOUS INFUSION)
     Route: 041
  4. PREDNISONE. [Suspect]
     Active Substance: PREDNISONE
     Indication: BURKITT^S LYMPHOMA
     Dosage: 60 MG/M2, CYCLIC (DAYS 1-5)
     Route: 048
  5. ETOPOSIDE. [Suspect]
     Active Substance: ETOPOSIDE
     Indication: BURKITT^S LYMPHOMA
     Dosage: 50 MG/M2, CYCLIC, (DAYS 1-4 CONTINUOUS INTRAVENOUS INFUSION)
     Route: 041
  6. NEUPOGEN [Concomitant]
     Active Substance: FILGRASTIM
     Dosage: 480 UG, CYCLIC (DAY 6)
     Route: 058
  7. VINCRISTINE SULFATE. [Suspect]
     Active Substance: VINCRISTINE SULFATE
     Indication: BURKITT^S LYMPHOMA
     Dosage: 0.4 MG/M2, CYCLIC, (DAYS 1-4 CONTINUOUS INTRAVENOUS INFUSION)
     Route: 041
  8. RITUXIMAB. [Suspect]
     Active Substance: RITUXIMAB
     Dosage: 375 MG/M2, CYCLIC (DAY 1)
     Route: 042
  9. METHOTREXATE. [Concomitant]
     Active Substance: METHOTREXATE
     Dosage: UNK, CYCLIC (TWICE WEEKLY FOR AT LEAST 4 WEEKS, THEN WEEKLY FOR 6 WEEKS, AND THEN MONTHLY FOR 6 MONT
     Route: 037

REACTIONS (1)
  - Respiratory failure [Fatal]
